FAERS Safety Report 6004702-5 (Version None)
Quarter: 2008Q4

REPORT INFORMATION
  Report Type: 
  Country: None (occurrence: None)
  Receive Date: 20081216
  Receipt Date: 20081212
  Transmission Date: 20090506
  Serious: Yes (Other)
  Sender: FDA-Public Use
  Company Number: JO-ROXANE LABORATORIES, INC.-2008-RO-00414RO

PATIENT
  Age: 4 Day
  Sex: Female
  Weight: 1 kg

DRUGS (3)
  1. MORPHINE [Suspect]
     Indication: PAIN MANAGEMENT
  2. FUROSEMIDE [Concomitant]
     Indication: RENAL IMPAIRMENT
  3. SODIUM CHLORIDE [Concomitant]
     Indication: RENAL IMPAIRMENT

REACTIONS (2)
  - HYDRONEPHROSIS [None]
  - RENAL IMPAIRMENT [None]
